FAERS Safety Report 7602545-X (Version None)
Quarter: 2011Q3

REPORT INFORMATION
  Report Type: 
  Country: None (occurrence: None)
  Receive Date: 20110701
  Receipt Date: 20090923
  Transmission Date: 20111222
  Serious: Yes (Disabling, Other)
  Sender: FDA-Public Use
  Company Number: SIM_00010_2011

PATIENT
  Sex: Male

DRUGS (1)
  1. CATARACT CARE (HOMEOPATHIC) [Suspect]
     Indication: CATARACT
     Dosage: (DF OPHTHALMIC)
     Route: 047
     Dates: start: 20090801

REACTIONS (4)
  - CONFUSIONAL STATE [None]
  - BLINDNESS UNILATERAL [None]
  - GAIT DISTURBANCE [None]
  - DECREASED APPETITE [None]
